FAERS Safety Report 19734239 (Version 3)
Quarter: 2022Q3

REPORT INFORMATION
  Report Type: Spontaneous
  Country: DE (occurrence: DE)
  Receive Date: 20210824
  Receipt Date: 20220809
  Transmission Date: 20221027
  Serious: Yes (Other)
  Sender: FDA-Public Use
  Company Number: DE-OTSUKA-2021_027610

PATIENT
  Age: 28 Year
  Sex: Male

DRUGS (7)
  1. ARIPIPRAZOLE [Suspect]
     Active Substance: ARIPIPRAZOLE
     Indication: Schizophrenia
     Dosage: 10 MILLIGRAM, ONCE A DAY
     Route: 065
  2. ARIPIPRAZOLE [Suspect]
     Active Substance: ARIPIPRAZOLE
     Indication: Adjuvant therapy
     Dosage: 20 MILLIGRAM, ONCE A DAY
     Route: 065
  3. DIAZEPAM [Suspect]
     Active Substance: DIAZEPAM
     Indication: Psychotherapy
     Dosage: 20 MILLIGRAM, ONCE A DAY (10 MG, BID)
     Route: 065
  4. ARIPIPRAZOLE [Suspect]
     Active Substance: ARIPIPRAZOLE
     Indication: Schizophrenia
     Dosage: 400 MG, EVERY 28 DAYS
     Route: 065
  5. ARIPIPRAZOLE [Suspect]
     Active Substance: ARIPIPRAZOLE
     Indication: Adjuvant therapy
     Dosage: 10 MILLIGRAM, QD
     Route: 065
  6. ARIPIPRAZOLE [Suspect]
     Active Substance: ARIPIPRAZOLE
     Dosage: 20 MILLIGRAM, QD
     Route: 065
  7. HALOPERIDOL [Suspect]
     Active Substance: HALOPERIDOL
     Indication: Psychotherapy
     Dosage: 10 MILLIGRAM, ONCE A DAY (5 MG, BID)
     Route: 065

REACTIONS (4)
  - Restlessness [Unknown]
  - Akathisia [Not Recovered/Not Resolved]
  - Anxiety [Unknown]
  - Irritability [Unknown]
